FAERS Safety Report 14305131 (Version 1)
Quarter: 2017Q4

REPORT INFORMATION
  Report Type: Spontaneous
  Country: JP (occurrence: JP)
  Receive Date: 20171219
  Receipt Date: 20171219
  Transmission Date: 20180321
  Serious: Yes (Hospitalization, Other)
  Sender: FDA-Public Use
  Company Number: JP-OTSUKA-03100-JPN-07-0099

PATIENT
  Age: 28 Year
  Sex: Female
  Weight: 85 kg

DRUGS (18)
  1. ABILIFY [Suspect]
     Active Substance: ARIPIPRAZOLE
     Dosage: 6 MG, QD
     Route: 048
     Dates: start: 20061204, end: 20061217
  2. ROHYPNOL [Concomitant]
     Active Substance: FLUNITRAZEPAM
     Dosage: 4 MG, QD
     Route: 048
  3. ABILIFY [Suspect]
     Active Substance: ARIPIPRAZOLE
     Dosage: 12 MG, QD
     Route: 048
     Dates: start: 20061218, end: 20070114
  4. FLUNITRAZEPAM [Concomitant]
     Active Substance: FLUNITRAZEPAM
     Dosage: 4 MG, UNK
     Route: 048
  5. SEROQUEL [Concomitant]
     Active Substance: QUETIAPINE FUMARATE
     Dosage: 25 MG, PRN
     Route: 048
  6. SENNA [Concomitant]
     Active Substance: SENNA LEAF\SENNOSIDES\SENNOSIDES A AND B
     Indication: CONSTIPATION
     Dosage: UNK
     Route: 048
  7. ABILIFY [Suspect]
     Active Substance: ARIPIPRAZOLE
     Dosage: 18 MG, QD
     Route: 048
     Dates: start: 20070115, end: 20070128
  8. DUOLUTON (ETHINYL ESTRADIOL\LEVONORGESTREL) [Suspect]
     Active Substance: ETHINYL ESTRADIOL\LEVONORGESTREL
     Dosage: 1 DF, QD
     Route: 048
     Dates: start: 20060901, end: 20070215
  9. SEPAZON [Concomitant]
     Active Substance: CLOXAZOLAM
     Dosage: 2 MG, PRN
     Route: 048
  10. HIRNAMIN [Suspect]
     Active Substance: PHENOTHIAZINE
     Route: 048
     Dates: start: 20070129, end: 20070215
  11. LEVOMEPROMAZINE [Suspect]
     Active Substance: LEVOMEPROMAZINE
     Indication: SCHIZOPHRENIA
     Dosage: 75 MG, UNK
     Route: 048
     Dates: start: 20070129, end: 20070215
  12. SELBEX [Concomitant]
     Active Substance: TEPRENONE
     Dosage: 50 MG, BID
     Route: 048
  13. LENDORMIN D [Concomitant]
     Active Substance: BROTIZOLAM
     Dosage: 0.5 MG, QD
     Route: 048
  14. ABILIFY [Suspect]
     Active Substance: ARIPIPRAZOLE
     Dosage: 18 MG, QD
     Route: 048
     Dates: start: 20070305
  15. DUOLUTON (ETHINYL ESTRADIOL\LEVONORGESTREL) [Suspect]
     Active Substance: ETHINYL ESTRADIOL\LEVONORGESTREL
     Dosage: 1 DF, QD
     Route: 048
     Dates: start: 200703
  16. FORSENID [Concomitant]
     Active Substance: SENNOSIDES A AND B
     Dosage: 24 MG, PRN
     Route: 048
  17. ABILIFY [Suspect]
     Active Substance: ARIPIPRAZOLE
     Dosage: 24 MG, QD
     Route: 048
     Dates: start: 20070129, end: 20070215
  18. FLOMOX [Concomitant]
     Active Substance: CEFCAPENE PIVOXIL HYDROCHLORIDE HYDRATE
     Dosage: 100 MG, TID
     Route: 048
     Dates: start: 20070212, end: 20070216

REACTIONS (1)
  - Pulmonary embolism [Recovered/Resolved]

NARRATIVE: CASE EVENT DATE: 20070208
